FAERS Safety Report 5103405-9 (Version None)
Quarter: 2006Q3

REPORT INFORMATION
  Report Type: 
  Country: None (occurrence: None)
  Receive Date: 20060913
  Receipt Date: 20051121
  Transmission Date: 20061208
  Serious: Yes (Other)
  Sender: FDA-Public Use
  Company Number: US-AVENTIS-200520193US

PATIENT
  Sex: Male
  Weight: 90.9 kg

DRUGS (2)
  1. LANTUS [Suspect]
     Dates: start: 20050501
  2. LANTUS [Suspect]

REACTIONS (2)
  - DRUG INEFFECTIVE [None]
  - GALLBLADDER DISORDER [None]
